FAERS Safety Report 22252582 (Version 3)
Quarter: 2023Q2

REPORT INFORMATION
  Report Type: Spontaneous
  Country: CN (occurrence: CN)
  Receive Date: 20230426
  Receipt Date: 20230608
  Transmission Date: 20230722
  Serious: Yes (Hospitalization)
  Sender: FDA-Public Use
  Company Number: CN-ROCHE-3329398

PATIENT
  Age: 45 Year
  Sex: Female
  Weight: 54.5 kg

DRUGS (4)
  1. CAPECITABINE [Suspect]
     Active Substance: CAPECITABINE
     Indication: Triple negative breast cancer
     Dosage: TWICE A DAY?DAILY DOSE: 2000 MILLIGRAM/M?
     Route: 048
     Dates: start: 20230301
  2. CAPECITABINE [Suspect]
     Active Substance: CAPECITABINE
     Indication: Triple negative breast cancer
     Dosage: MOST RECENT DOSE OF CAPECITABINE ADMINISTERED PRIOR TO AE/SAE ONSET 1450MG ON 14/MAR/2023/
     Route: 048
     Dates: start: 20230314
  3. ATEZOLIZUMAB [Suspect]
     Active Substance: ATEZOLIZUMAB
     Indication: Triple negative breast cancer
     Dosage: ON SAME DAY MOST RECENT DOSE ADMINISTERED PRIOR TO AE/SAE ONSET 1200MG WAS GIVEN
     Route: 042
     Dates: start: 20230301
  4. ATEZOLIZUMAB [Suspect]
     Active Substance: ATEZOLIZUMAB
     Indication: Triple negative breast cancer
     Dosage: IV DRIP,ONCE IN 3 WEEKS
     Route: 042
     Dates: start: 20230414

REACTIONS (1)
  - Pleural effusion [Recovered/Resolved]

NARRATIVE: CASE EVENT DATE: 20230305
